FAERS Safety Report 10769925 (Version 1)
Quarter: 2015Q1

REPORT INFORMATION
  Report Type: Spontaneous
  Country: US (occurrence: US)
  Receive Date: 20150206
  Receipt Date: 20150206
  Transmission Date: 20150721
  Serious: Yes (Other)
  Sender: FDA-Public Use
  Company Number: US-BAYER-2015-015295

PATIENT
  Sex: Female

DRUGS (1)
  1. MIRENA [Suspect]
     Active Substance: LEVONORGESTREL
     Dosage: 20 MCG/24HR, CONT
     Route: 015
     Dates: start: 20130808

REACTIONS (12)
  - Haemorrhagic cyst [None]
  - Anhedonia [Not Recovered/Not Resolved]
  - Emotional distress [None]
  - Infertility [None]
  - Fear of disease [None]
  - Pain [Not Recovered/Not Resolved]
  - Loss of libido [None]
  - Abdominal adhesions [None]
  - Anxiety [None]
  - Uterine perforation [Not Recovered/Not Resolved]
  - Injury [Not Recovered/Not Resolved]
  - Vaginal perforation [None]
